FAERS Safety Report 8615485-4 (Version None)
Quarter: 2012Q3

REPORT INFORMATION
  Report Type: 
  Country: None (occurrence: None)
  Receive Date: 20120823
  Receipt Date: 20120821
  Transmission Date: 20120928
  Serious: Yes (Hospitalization, Other)
  Sender: FDA-Public Use
  Company Number: US-JNJFOC-20120405960

PATIENT
  Sex: Female
  Weight: 48.54 kg

DRUGS (36)
  1. LEVOFLOXACIN [Suspect]
     Indication: ASTHMA
     Route: 042
     Dates: start: 20120312, end: 20120317
  2. ARIMIDEX [Concomitant]
     Indication: BREAST CANCER
     Route: 048
     Dates: start: 20050101
  3. LISINOPRIL [Concomitant]
     Indication: HYPERTENSION
     Route: 048
  4. LEVOFLOXACIN [Suspect]
     Indication: GASTRIC DISORDER
     Route: 042
     Dates: start: 20120312, end: 20120317
  5. THEOPHYLLINE [Concomitant]
     Indication: ASTHMA
     Route: 048
     Dates: start: 20020101
  6. LEVAQUIN [Suspect]
     Indication: WHEEZING
     Route: 048
     Dates: start: 20080101
  7. LEVOFLOXACIN [Suspect]
     Indication: RESPIRATORY TRACT CONGESTION
     Route: 042
     Dates: start: 20110301
  8. LEVOFLOXACIN [Suspect]
     Route: 042
     Dates: start: 20120312, end: 20120317
  9. PREDNISOLONE [Concomitant]
     Indication: ASTHMA
     Route: 048
  10. LEVOFLOXACIN [Suspect]
     Indication: ABDOMINAL PAIN
     Route: 042
     Dates: start: 20120312, end: 20120317
  11. LEVOFLOXACIN [Suspect]
     Route: 042
     Dates: start: 20110301
  12. VITAMIN D [Concomitant]
     Indication: RENAL DISORDER
     Route: 048
     Dates: start: 20070101
  13. XOPENEX [Concomitant]
     Indication: ASTHMA
     Route: 048
  14. COUMADIN [Concomitant]
     Route: 048
     Dates: start: 20120101
  15. PREDNISOLONE [Concomitant]
     Dosage: 10-60MG AS NEEDED
     Route: 048
     Dates: start: 20060101
  16. FLUTICASONE PROPIONATE [Concomitant]
     Dosage: 27.5UG PER ACTUATION
     Route: 045
  17. VITAMIN D [Concomitant]
     Dosage: 2000 UNITS
     Route: 048
     Dates: start: 20120103
  18. LEVOFLOXACIN [Suspect]
     Route: 042
     Dates: start: 20110301
  19. LEVOFLOXACIN [Suspect]
     Route: 042
     Dates: start: 20110301
  20. LEVOFLOXACIN [Suspect]
     Indication: COLITIS
     Route: 042
     Dates: start: 20110301
  21. MAGNESIUM [Concomitant]
     Dosage: 10-60MG AS NEEDED
     Route: 065
  22. LEVOFLOXACIN [Suspect]
     Indication: CHRONIC OBSTRUCTIVE PULMONARY DISEASE
     Route: 042
     Dates: start: 20110301
  23. LEVOFLOXACIN [Suspect]
     Route: 042
     Dates: start: 20120312, end: 20120317
  24. POTASSIUM [Concomitant]
     Route: 065
  25. VICODIN [Concomitant]
     Indication: PAIN
     Route: 048
     Dates: start: 20020101
  26. ALBUTEROL [Concomitant]
     Indication: ASTHMA
     Dosage: AS NEEDED
     Route: 055
     Dates: start: 19970101
  27. ATROVENT [Concomitant]
     Indication: CHRONIC OBSTRUCTIVE PULMONARY DISEASE
     Route: 065
  28. FUROSEMIDE [Concomitant]
     Dosage: 2 TABLETS AS NEEDED
     Route: 065
  29. LEVAQUIN [Suspect]
     Indication: ASTHMA
     Route: 048
     Dates: start: 20080101
  30. LEVOFLOXACIN [Suspect]
     Route: 042
     Dates: start: 20120312, end: 20120317
  31. SOLU-MEDROL [Concomitant]
     Indication: CHRONIC OBSTRUCTIVE PULMONARY DISEASE
     Route: 065
  32. CADUET [Concomitant]
     Indication: HYPERTENSION
     Route: 048
     Dates: start: 20080101
  33. AMBIEN [Concomitant]
     Indication: SLEEP DISORDER
     Dosage: AT NIGHT
     Route: 048
  34. NEXIUM [Concomitant]
     Indication: PRODUCT USED FOR UNKNOWN INDICATION
     Route: 048
  35. COUMADIN [Concomitant]
     Indication: THROMBOSIS
     Route: 048
     Dates: end: 20120101
  36. VITAMIN D [Concomitant]
     Dosage: 1000 UNITS
     Route: 048

REACTIONS (9)
  - WEIGHT FLUCTUATION [None]
  - THROMBOSIS [None]
  - MUSCULOSKELETAL PAIN [None]
  - BLOOD CALCIUM DECREASED [None]
  - TENDONITIS [None]
  - INTENTIONAL DRUG MISUSE [None]
  - CLOSTRIDIUM DIFFICILE COLITIS [None]
  - ARTHRALGIA [None]
  - MALAISE [None]
